FAERS Safety Report 26102004 (Version 1)
Quarter: 2025Q4

REPORT INFORMATION
  Report Type: Spontaneous
  Country: CA (occurrence: CA)
  Receive Date: 20251128
  Receipt Date: 20251128
  Transmission Date: 20260117
  Serious: Yes (Other)
  Sender: CELLTRION
  Company Number: CA-CELLTRION INC.-2025CA041226

PATIENT

DRUGS (3)
  1. INFLECTRA [Suspect]
     Active Substance: INFLIXIMAB-DYYB
     Indication: Ankylosing spondylitis
     Dosage: 330 MILLIGRAM EVERY 8 WEEKS; INDUCTION WEEK 0, 2, 6 THEN MAINTENANCE EVERY 8  WEEKS
     Route: 042
     Dates: start: 20241010, end: 20241128
  2. INFLECTRA [Suspect]
     Active Substance: INFLIXIMAB-DYYB
     Dosage: 8 MILLIGRAM EVERY 8 WEEKS
     Route: 042
     Dates: start: 20250127
  3. INFLECTRA [Suspect]
     Active Substance: INFLIXIMAB-DYYB
     Dosage: UNK
     Dates: start: 20250915

REACTIONS (11)
  - Ankylosing spondylitis [Not Recovered/Not Resolved]
  - Limb mass [Unknown]
  - Cholelithiasis [Unknown]
  - Lip dry [Unknown]
  - Eczema [Unknown]
  - Nasopharyngitis [Not Recovered/Not Resolved]
  - Sinusitis [Unknown]
  - Vaginal infection [Not Recovered/Not Resolved]
  - Abdominal pain [Unknown]
  - Fatigue [Not Recovered/Not Resolved]
  - Cyanosis [Unknown]

NARRATIVE: CASE EVENT DATE: 20250101
